FAERS Safety Report 12206024 (Version 2)
Quarter: 2016Q2

REPORT INFORMATION
  Report Type: Report from Study
  Country: US (occurrence: US)
  Receive Date: 20160323
  Receipt Date: 20160413
  Transmission Date: 20160815
  Serious: Yes (Other)
  Sender: FDA-Public Use
  Company Number: US-BIOGEN-2016BI00209612

PATIENT
  Age: 39 Year
  Sex: Female

DRUGS (3)
  1. TYSABRI [Suspect]
     Active Substance: NATALIZUMAB
     Indication: MULTIPLE SCLEROSIS
     Dosage: INFUSED OVER 1 HOUR
     Route: 042
     Dates: start: 201401
  2. TYSABRI [Suspect]
     Active Substance: NATALIZUMAB
     Dosage: INFUSED OVER 1 HOUR
     Route: 042
     Dates: end: 20160126
  3. TYSABRI [Suspect]
     Active Substance: NATALIZUMAB
     Dosage: INFUSED OVER 1 HOUR
     Route: 042
     Dates: start: 20140212, end: 20151209

REACTIONS (10)
  - Eating disorder [Recovered/Resolved]
  - Personality change [Recovered/Resolved]
  - Agitation [Recovered/Resolved]
  - Vomiting [Recovered/Resolved]
  - Dissociation [Recovered/Resolved]
  - Aggression [Recovered/Resolved]
  - Nausea [Recovered/Resolved]
  - Abnormal behaviour [Recovered/Resolved]
  - Impulsive behaviour [Recovered/Resolved]
  - Depression [Recovered/Resolved]

NARRATIVE: CASE EVENT DATE: 201401
